FAERS Safety Report 9293847 (Version 1)
Quarter: 2013Q2

REPORT INFORMATION
  Report Type: Spontaneous
  Country: US (occurrence: US)
  Receive Date: 20130516
  Receipt Date: 20130516
  Transmission Date: 20140414
  Serious: No
  Sender: FDA-Public Use
  Company Number: US-ASTRAZENECA-2013SE30960

PATIENT
  Age: 88 Year
  Sex: Male
  Weight: 69.4 kg

DRUGS (8)
  1. LISINOPRIL [Suspect]
     Route: 048
  2. BRILINTA [Suspect]
     Indication: STENT PLACEMENT
     Route: 048
     Dates: start: 20120414, end: 20120512
  3. BRILINTA [Suspect]
     Indication: ANTICOAGULANT THERAPY
     Route: 048
     Dates: start: 20120414, end: 20120512
  4. EFFIANT [Concomitant]
  5. BYSTOLIC [Concomitant]
  6. DEXILENT ER [Concomitant]
  7. ISOSORBIDE [Concomitant]
  8. BABY ASPIRIN [Concomitant]

REACTIONS (3)
  - Dyspnoea [Recovered/Resolved]
  - Weight decreased [Not Recovered/Not Resolved]
  - Tooth infection [Not Recovered/Not Resolved]
